FAERS Safety Report 12232049 (Version 7)
Quarter: 2018Q1

REPORT INFORMATION
  Report Type: Spontaneous
  Country: US (occurrence: US)
  Receive Date: 20160401
  Receipt Date: 20180206
  Transmission Date: 20180508
  Serious: Yes (Hospitalization, Other)
  Sender: FDA-Public Use
  Company Number: US-GLAXOSMITHKLINE-US2016GSK044664

PATIENT
  Age: 60 Year
  Sex: Female

DRUGS (4)
  1. MEPRON [Suspect]
     Active Substance: ATOVAQUONE
     Indication: WHITE BLOOD CELL COUNT
     Dosage: UNK
     Dates: start: 20160222
  2. MEPRON [Suspect]
     Active Substance: ATOVAQUONE
     Dosage: UNK
     Dates: start: 201604
  3. MEPRON [Suspect]
     Active Substance: ATOVAQUONE
     Dosage: UNK
     Dates: start: 201601
  4. MEPRON [Suspect]
     Active Substance: ATOVAQUONE
     Dosage: UNK

REACTIONS (13)
  - Malaise [Unknown]
  - Lymphoma [Unknown]
  - B-cell lymphoma [Unknown]
  - Pyrexia [Unknown]
  - Neoplasm malignant [Unknown]
  - Haematological malignancy [Unknown]
  - Pain [Unknown]
  - Hospitalisation [Unknown]
  - General physical health deterioration [Unknown]
  - Productive cough [Unknown]
  - Chemotherapy [Unknown]
  - Off label use [Unknown]
  - Leukopenia [Unknown]

NARRATIVE: CASE EVENT DATE: 2016
